FAERS Safety Report 14553301 (Version 1)
Quarter: 2018Q1

REPORT INFORMATION
  Report Type: Spontaneous
  Country: US (occurrence: US)
  Receive Date: 20180216
  Receipt Date: 20180216
  Transmission Date: 20180509
  Serious: Yes (Death)
  Sender: FDA-Public Use
  Company Number: None

PATIENT
  Sex: Male
  Weight: 90 kg

DRUGS (10)
  1. FOURSEMIDE [Concomitant]
  2. CARTIA XT [Concomitant]
     Active Substance: DILTIAZEM HYDROCHLORIDE
  3. ATROVASTATIN [Concomitant]
     Active Substance: ATORVASTATIN CALCIUM
  4. SOTALOL HCL 80 MG TAB GENERIC FOR BETAPACE 80MG TAB [Suspect]
     Active Substance: SOTALOL
     Indication: ATRIAL FIBRILLATION
     Dosage: ?          QUANTITY:1 TABLET(S);?
     Route: 048
  5. POTASSIUM CHLORIDE. [Concomitant]
     Active Substance: POTASSIUM CHLORIDE
  6. METFORMIN [Concomitant]
     Active Substance: METFORMIN HYDROCHLORIDE
  7. TAMSULOSIN [Concomitant]
     Active Substance: TAMSULOSIN
  8. POIGLITAZONE [Concomitant]
  9. WARFIN [Concomitant]
     Active Substance: WARFARIN
  10. METOLAZONE. [Concomitant]
     Active Substance: METOLAZONE

REACTIONS (2)
  - Malaise [None]
  - Fall [None]

NARRATIVE: CASE EVENT DATE: 20180128
